FAERS Safety Report 9250003 (Version 1)
Quarter: 2013Q2

REPORT INFORMATION
  Report Type: Spontaneous
  Country: RU (occurrence: RU)
  Receive Date: 20130424
  Receipt Date: 20130424
  Transmission Date: 20140414
  Serious: Yes (Life-Threatening, Hospitalization)
  Sender: FDA-Public Use
  Company Number: RU-RANBAXY-2013R3-67763

PATIENT
  Age: 18 Year
  Sex: Male
  Weight: 61 kg

DRUGS (1)
  1. SOTRET [Suspect]
     Indication: ACNE
     Dosage: 30 MG, QD
     Route: 048
     Dates: start: 20130202, end: 20130311

REACTIONS (2)
  - Appendicitis [Recovered/Resolved]
  - Peritonitis [Recovering/Resolving]
